FAERS Safety Report 18149457 (Version 1)
Quarter: 2020Q3

REPORT INFORMATION
  Report Type: Spontaneous
  Country: US (occurrence: US)
  Receive Date: 20200813
  Receipt Date: 20200813
  Transmission Date: 20201103
  Serious: No
  Sender: FDA-Public Use
  Company Number: None

PATIENT
  Age: 42 Year
  Sex: Male
  Weight: 93.6 kg

DRUGS (12)
  1. GUAIFENESIN?DEXTROMETHORPHAN [Concomitant]
     Dates: start: 20200728, end: 20200807
  2. MELATONIN [Concomitant]
     Active Substance: MELATONIN
     Dates: start: 20200730, end: 20200807
  3. ENOXAPARIN [Concomitant]
     Active Substance: ENOXAPARIN
     Dates: start: 20200728, end: 20200812
  4. REMDESIVIR. [Suspect]
     Active Substance: REMDESIVIR
     Indication: COVID-19
     Route: 041
     Dates: start: 20200731, end: 20200801
  5. DEXAMETHASONE. [Concomitant]
     Active Substance: DEXAMETHASONE
     Dates: start: 20200801, end: 20200806
  6. ASPIRIN. [Concomitant]
     Active Substance: ASPIRIN
     Dates: start: 20200728, end: 20200812
  7. IBUPROFEN. [Concomitant]
     Active Substance: IBUPROFEN
     Dates: start: 20200731, end: 20200812
  8. ACETAMINOPHEN. [Concomitant]
     Active Substance: ACETAMINOPHEN
     Dates: start: 20200731, end: 20200812
  9. ATORVASTATIN [Concomitant]
     Active Substance: ATORVASTATIN
     Dates: start: 20200728, end: 20200812
  10. LOPERAMIDE [Concomitant]
     Active Substance: LOPERAMIDE
     Dates: start: 20200731, end: 20200812
  11. LOSARTAN. [Concomitant]
     Active Substance: LOSARTAN
     Dates: start: 20200728, end: 20200812
  12. BENZONATATE. [Concomitant]
     Active Substance: BENZONATATE
     Dates: start: 20200729, end: 20200803

REACTIONS (3)
  - Therapy interrupted [None]
  - Aspartate aminotransferase increased [None]
  - Alanine aminotransferase increased [None]

NARRATIVE: CASE EVENT DATE: 20200801
